FAERS Safety Report 5011093-5 (Version None)
Quarter: 2006Q2

REPORT INFORMATION
  Report Type: 
  Country: None (occurrence: None)
  Receive Date: 20060525
  Receipt Date: 20060130
  Transmission Date: 20061013
  Serious: Yes (Hospitalization)
  Sender: FDA-Public Use
  Company Number: AT-BRISTOL-MYERS SQUIBB COMPANY-13264064

PATIENT
  Age: 75 Year
  Sex: Male

DRUGS (5)
  1. FENOFIBRATE [Interacting]
     Indication: HYPERLIPIDAEMIA
  2. METFORMIN HYDROCHLORIDE [Suspect]
     Indication: DIABETES MELLITUS NON-INSULIN-DEPENDENT
  3. ROSIGLITAZONE [Interacting]
     Indication: DIABETES MELLITUS
  4. FENPROCOUMON [Concomitant]
     Indication: AORTIC VALVE REPLACEMENT
  5. VALSARTAN [Concomitant]
     Indication: HYPERTENSION

REACTIONS (2)
  - DRUG INTERACTION [None]
  - MYOPATHY [None]
